FAERS Safety Report 8306620-6 (Version None)
Quarter: 2012Q2

REPORT INFORMATION
  Report Type: 
  Country: None (occurrence: None)
  Receive Date: 20120424
  Receipt Date: 20120416
  Transmission Date: 20120825
  Serious: Yes (Other)
  Sender: FDA-Public Use
  Company Number: US-BAYER-2011-017440

PATIENT
  Age: 35 Year
  Sex: Female
  Weight: 55.782 kg

DRUGS (10)
  1. YAZ [Suspect]
     Indication: ACNE
     Dosage: UNK
     Route: 048
     Dates: start: 20070701, end: 20080613
  2. YAZ [Suspect]
     Indication: MENSTRUAL CYCLE MANAGEMENT
  3. SOMA [Concomitant]
     Indication: PAIN MANAGEMENT
  4. DECADRON [Concomitant]
     Indication: PAIN IN EXTREMITY
     Dosage: UNK
     Dates: start: 20080606
  5. LEXAPRO [Concomitant]
     Indication: ANXIETY
     Dosage: UNK
     Dates: start: 20080524, end: 20080613
  6. LORTAB [Concomitant]
     Indication: PAIN MANAGEMENT
  7. ADDERALL 5 [Concomitant]
     Indication: ATTENTION DEFICIT/HYPERACTIVITY DISORDER
     Dosage: UNK
     Dates: start: 20080524, end: 20080613
  8. YAZ [Suspect]
     Indication: CONTRACEPTION
     Dosage: UNK
     Route: 048
     Dates: start: 20080524, end: 20080613
  9. PRILOSEC [Concomitant]
     Indication: GASTROOESOPHAGEAL REFLUX DISEASE
     Dosage: UNK
     Dates: start: 20080524, end: 20080613
  10. LEXAPRO [Concomitant]
     Indication: DEPRESSION

REACTIONS (5)
  - OEDEMA PERIPHERAL [None]
  - PAIN [None]
  - INJURY [None]
  - MENTAL DISORDER [None]
  - DEEP VEIN THROMBOSIS [None]
